FAERS Safety Report 22648241 (Version 3)
Quarter: 2023Q4

REPORT INFORMATION
  Report Type: Spontaneous
  Country: JP (occurrence: JP)
  Receive Date: 20230628
  Receipt Date: 20231110
  Transmission Date: 20240110
  Serious: Yes (Hospitalization, Other)
  Sender: FDA-Public Use
  Company Number: JP-BAYER-2023A089195

PATIENT
  Sex: Female

DRUGS (7)
  1. EYLEA [Suspect]
     Active Substance: AFLIBERCEPT
     Indication: Diabetic retinal oedema
     Dosage: DAILY DOSE 2 MG, RIGHT EYE, SOLUTION FOR INJECTION IN PRE-FILLED SYRINGE, STRENGTH: 40MG/ML
     Route: 031
     Dates: start: 20210519, end: 20210519
  2. EYLEA [Suspect]
     Active Substance: AFLIBERCEPT
     Indication: Diabetic retinopathy
     Dosage: DAILY DOSE 2 MG, LEFT EYE, SOLUTION FOR INJECTION IN PRE-FILLED SYRINGE, STRENGTH:40MG/ML
     Route: 031
     Dates: start: 20210526, end: 20210526
  3. EYLEA [Suspect]
     Active Substance: AFLIBERCEPT
     Dosage: DAILY DOSE 2 MG, LEFT EYE, SOLUTION FOR INJECTION IN PRE-FILLED SYRINGE, STRENGTH: 40MG/ML
     Route: 031
     Dates: start: 20210922, end: 20210922
  4. EYLEA [Suspect]
     Active Substance: AFLIBERCEPT
     Dosage: DAILY DOSE 2 MG, RIGHT EYE, SOLUTION FOR INJECTION IN PRE-FILLED SYRINGE, STRENGTH: 40MG/ML
     Route: 031
     Dates: start: 20210929, end: 20210929
  5. EYLEA [Suspect]
     Active Substance: AFLIBERCEPT
     Dosage: DAILY DOSE 2 MG, RIGHT EYE, SOLUTION FOR INJECTION IN PRE-FILLED SYRINGE, STRENGTH: 40MG/ML
     Route: 031
     Dates: start: 20220104, end: 20220104
  6. EYLEA [Suspect]
     Active Substance: AFLIBERCEPT
     Dosage: DAILY DOSE 2 MG, LEFT EYE, SOLUTION FOR INJECTION IN PRE-FILLED SYRINGE, STRENGTH: 40MG/ML
     Route: 031
     Dates: start: 20220125, end: 20220125
  7. EYLEA [Suspect]
     Active Substance: AFLIBERCEPT
     Dosage: 7 TIMES, DAILY DOSE 2 MG, BOTH EYES, SOLUTION FOR INJECTION IN PRE-FILLED SYRINGE, STRENGTH: 40MG/ML
     Route: 031
     Dates: start: 20220408, end: 20230328

REACTIONS (7)
  - Left ventricular failure [Recovering/Resolving]
  - Respiratory failure [Recovering/Resolving]
  - Brain natriuretic peptide increased [Unknown]
  - Face oedema [Recovering/Resolving]
  - Oedema peripheral [Recovering/Resolving]
  - Pulmonary congestion [Recovering/Resolving]
  - Pleural effusion [Recovering/Resolving]

NARRATIVE: CASE EVENT DATE: 20220127
